FAERS Safety Report 10229786 (Version 1)
Quarter: 2014Q2

REPORT INFORMATION
  Report Type: Spontaneous
  Country: DE (occurrence: DE)
  Receive Date: 20140611
  Receipt Date: 20140611
  Transmission Date: 20141212
  Serious: Yes (Death)
  Sender: FDA-Public Use
  Company Number: DE-AMGEN-DEUSP2014041744

PATIENT
  Age: 90 Year
  Sex: Female
  Weight: 55 kg

DRUGS (9)
  1. NPLATE [Suspect]
     Indication: IMMUNE THROMBOCYTOPENIC PURPURA
     Dosage: 55 MUG, UNK
     Route: 058
     Dates: start: 20140502, end: 20140516
  2. L-THYROXINE                        /00068001/ [Concomitant]
     Indication: HYPOTHYROIDISM
     Dosage: 75 MUG, UNK
     Route: 048
  3. DECORTIN [Concomitant]
     Indication: IMMUNE THROMBOCYTOPENIC PURPURA
     Dosage: 10 MG, UNK
     Route: 058
     Dates: start: 20140502, end: 20140516
  4. HCT [Concomitant]
     Indication: HYPERTENSION
     Dosage: 12.5 MG, UNK
     Route: 048
  5. METOPROLOL [Concomitant]
     Indication: HYPERTENSION
     Dosage: 47.5 MG, UNK
     Route: 048
  6. PANTOZOL                           /01263204/ [Concomitant]
     Indication: GASTRITIS
     Dosage: 20 MG, UNK
     Route: 048
  7. ENAHEXAL                           /00574902/ [Concomitant]
     Indication: HYPERTENSION
     Dosage: 10 MG, UNK
     Route: 048
  8. TOREM                              /01036501/ [Concomitant]
     Indication: CARDIAC FAILURE
     Dosage: 10 MG, UNK
  9. TOREM                              /01036501/ [Concomitant]
     Indication: CARDIAC FAILURE

REACTIONS (3)
  - Intestinal ischaemia [Fatal]
  - Mesenteric vascular occlusion [Fatal]
  - Mesenteric artery thrombosis [Fatal]
